FAERS Safety Report 7744371-7 (Version None)
Quarter: 2011Q3

REPORT INFORMATION
  Report Type: 
  Country: None (occurrence: None)
  Receive Date: 20110912
  Receipt Date: 20110907
  Transmission Date: 20111222
  Serious: Yes (Other)
  Sender: FDA-Public Use
  Company Number: US-PFIZER INC-2011184453

PATIENT
  Sex: Female
  Weight: 78.4 kg

DRUGS (6)
  1. NEURONTIN [Suspect]
     Indication: DIABETIC NEUROPATHY
     Dosage: 100 MG, UNK
     Dates: start: 20110808, end: 20110809
  2. GLIPIZIDE [Concomitant]
     Indication: DIABETES MELLITUS
     Dosage: 5 MG, 2X/DAY
  3. NEURONTIN [Suspect]
     Indication: PAIN IN EXTREMITY
     Dosage: 200 MG, DAILY
     Dates: start: 20110525, end: 20110807
  4. NEURONTIN [Suspect]
     Dosage: 200 MG, DAILY
     Dates: start: 20110810
  5. LANTUS [Concomitant]
     Indication: DIABETES MELLITUS
     Dosage: UNK
  6. METFORMIN [Concomitant]
     Indication: DIABETES MELLITUS
     Dosage: 1000 MG, 2X/DAY

REACTIONS (17)
  - DIZZINESS [None]
  - PANIC ATTACK [None]
  - OROPHARYNGEAL PAIN [None]
  - DISCOMFORT [None]
  - DYSPNOEA [None]
  - FATIGUE [None]
  - COORDINATION ABNORMAL [None]
  - AGITATION [None]
  - COUGH [None]
  - MALAISE [None]
  - FEELING ABNORMAL [None]
  - MOOD ALTERED [None]
  - VIRAL INFECTION [None]
  - IRRITABILITY [None]
  - ANXIETY [None]
  - CRYING [None]
  - TREMOR [None]
